FAERS Safety Report 7000651-4 (Version None)
Quarter: 2010Q3

REPORT INFORMATION
  Report Type: 
  Country: None (occurrence: None)
  Receive Date: 20100920
  Receipt Date: 20100419
  Transmission Date: 20110219
  Serious: No
  Sender: FDA-Public Use
  Company Number: US-ASTRAZENECA-2009UW04415

PATIENT
  Sex: Male

DRUGS (1)
  1. SEROQUEL [Suspect]
     Indication: SLEEP DISORDER
     Route: 048
     Dates: start: 19970216, end: 20100201

REACTIONS (5)
  - ABDOMINAL PAIN UPPER [None]
  - DRUG DOSE OMISSION [None]
  - HALLUCINATION, AUDITORY [None]
  - INSOMNIA [None]
  - SPEECH DISORDER [None]
